FAERS Safety Report 6847370-2 (Version None)
Quarter: 2010Q3

REPORT INFORMATION
  Report Type: 
  Country: None (occurrence: None)
  Receive Date: 20100716
  Receipt Date: 20100709
  Transmission Date: 20110219
  Serious: Yes (Death, Hospitalization)
  Sender: FDA-Public Use
  Company Number: JP-BAYER-201013449BYL

PATIENT
  Age: 78 Year
  Sex: Female
  Weight: 53 kg

DRUGS (18)
  1. NEXAVAR [Suspect]
     Indication: HEPATIC NEOPLASM MALIGNANT
     Dosage: TOTAL DAILY DOSE: 400 MG  UNIT DOSE: 400 MG
     Route: 048
     Dates: start: 20100617, end: 20100622
  2. ALBUMIN (HUMAN) [Concomitant]
     Dosage: UNIT DOSE: 20 %
     Route: 042
     Dates: start: 20100618, end: 20100619
  3. LASIX [Concomitant]
     Route: 042
     Dates: start: 20100618, end: 20100622
  4. SOLDACTONE [Concomitant]
     Route: 042
     Dates: start: 20100618, end: 20100622
  5. ROPION [Concomitant]
     Route: 042
     Dates: start: 20100623, end: 20100628
  6. ROPION [Concomitant]
     Route: 042
     Dates: start: 20100702, end: 20100705
  7. RINDERON [Concomitant]
     Route: 042
     Dates: start: 20100623, end: 20100702
  8. RINDERON [Concomitant]
     Route: 042
     Dates: start: 20100706, end: 20100707
  9. CIRCANETTEN [Concomitant]
     Dosage: SINCE BEFORE ADMINISTRATION
     Route: 048
     Dates: end: 20100623
  10. ZYRTEC [Concomitant]
     Dosage: SINCE BEFORE ADMINISTRATION
     Route: 048
     Dates: end: 20100623
  11. ADALAT CC [Concomitant]
     Dosage: SINCE BEFORE ADMINISTRATION
     Route: 048
     Dates: end: 20100623
  12. RABEPRAZOLE SODIUM [Concomitant]
     Dosage: SINCE BEFORE ADMINISTRATION
     Route: 048
     Dates: end: 20100623
  13. MUCOSTA [Concomitant]
     Route: 048
     Dates: start: 20100618, end: 20100623
  14. PURSENNID [Concomitant]
     Dosage: SINCE BEFORE ADMINISTRATION
     Route: 048
     Dates: end: 20100623
  15. MAGNESIUM OXIDE [Concomitant]
     Dosage: SINCE BEFORE ADMINISTRATION
     Route: 048
     Dates: end: 20100623
  16. URSO 250 [Concomitant]
     Dosage: SINCE BEFORE ADMINISTRATION
     Route: 048
     Dates: end: 20100623
  17. LOXONIN [Concomitant]
     Dosage: SINCE BEFORE ADMINISTRATION
     Route: 048
     Dates: end: 20100623
  18. AMOBAN [Concomitant]
     Dosage: SINCE BEFORE ADMINISTRATION
     Route: 048
     Dates: end: 20100623

REACTIONS (3)
  - HYPERAMMONAEMIA [None]
  - RECTAL ULCER HAEMORRHAGE [None]
  - RESPIRATORY FAILURE [None]
